FAERS Safety Report 5255690-0 (Version None)
Quarter: 2007Q1

REPORT INFORMATION
  Report Type: 
  Country: None (occurrence: None)
  Receive Date: 20070305
  Receipt Date: 20070221
  Transmission Date: 20070707
  Serious: Yes (Hospitalization)
  Sender: FDA-Public Use
  Company Number: PH-PFIZER INC-2007011468

PATIENT
  Age: 65 Year
  Sex: Female

DRUGS (5)
  1. LYRICA [Suspect]
     Indication: NEURALGIA
     Route: 048
  2. INSULIN [Concomitant]
  3. METFORMIN HCL [Concomitant]
  4. ACTOS [Concomitant]
  5. ALL OTHER THERAPEUTIC PRODUCTS [Concomitant]
     Route: 061

REACTIONS (3)
  - FAECES DISCOLOURED [None]
  - HAEMOGLOBIN DECREASED [None]
  - NEURALGIA [None]
